FAERS Safety Report 5655809-3 (Version None)
Quarter: 2008Q1

REPORT INFORMATION
  Report Type: 
  Country: None (occurrence: None)
  Receive Date: 20080307
  Receipt Date: 20080226
  Transmission Date: 20080703
  Serious: Yes (Other)
  Sender: FDA-Public Use
  Company Number: GB-PFIZER INC-2008012918

PATIENT
  Age: 24 Year
  Sex: Male

DRUGS (1)
  1. CHANTIX [Suspect]
     Dosage: DAILY DOSE:2MG
     Route: 048
     Dates: start: 20070901, end: 20070101

REACTIONS (3)
  - DEPRESSION [None]
  - SUICIDAL BEHAVIOUR [None]
  - SUICIDAL IDEATION [None]
